FAERS Safety Report 13276118 (Version 1)
Quarter: 2017Q1

REPORT INFORMATION
  Report Type: Other
  Country: GB (occurrence: CN)
  Receive Date: 20170228
  Receipt Date: 20170228
  Transmission Date: 20170428
  Serious: Yes (Life-Threatening, Hospitalization)
  Sender: FDA-Public Use
  Company Number: CN-CLARIS PHARMASERVICES-1063659

PATIENT
  Age: 75 Year
  Sex: Male

DRUGS (4)
  1. FLUCONAZOLE. [Suspect]
     Active Substance: FLUCONAZOLE
     Indication: CANDIDA INFECTION
     Route: 042
  2. AMIODARONE [Suspect]
     Active Substance: AMIODARONE
     Route: 042
  3. AMIODARONE [Suspect]
     Active Substance: AMIODARONE
     Route: 042
  4. AMIODARONE [Suspect]
     Active Substance: AMIODARONE
     Route: 048

REACTIONS (4)
  - Ventricular tachycardia [Recovered/Resolved]
  - Cardiac arrest [Recovered/Resolved]
  - Drug interaction [Recovered/Resolved]
  - Atrial fibrillation [Recovered/Resolved]
